FAERS Safety Report 4295059-9 (Version None)
Quarter: 2004Q1

REPORT INFORMATION
  Report Type: 
  Country: None (occurrence: None)
  Receive Date: 20040213
  Receipt Date: 20040130
  Transmission Date: 20041129
  Serious: Yes (Hospitalization)
  Sender: FDA-Public Use
  Company Number: 204283

PATIENT
  Age: 30 Year
  Sex: Male
  Weight: 99 kg

DRUGS (21)
  1. XOLAIR [Suspect]
     Indication: ASTHMA
     Dosage: 375 MG, Q2W, SUBCUTANEOUS
     Route: 058
     Dates: start: 20031024
  2. UNIPHYL [Concomitant]
  3. COMBIVENT (IPRATROPIUM BROMIDE, ALBUTEROL SULFATE, ALBUTEROL) [Concomitant]
  4. ADVAIR DISKUS [Concomitant]
  5. MUCINEX (GUAIFENESIN) [Concomitant]
  6. SINGULAIR [Concomitant]
  7. ALLEGRA [Concomitant]
  8. ZYRTEC [Concomitant]
  9. PULMICORT RESPULES [Concomitant]
  10. TILADE (NEDOCROMIL SODIUM) [Concomitant]
  11. ACIPHEX [Concomitant]
  12. ASTELIN AZELASTINE HYDROCHLORIDE) [Concomitant]
  13. NASONEX [Concomitant]
  14. ALBUTEROL NEBULIZER (ALBUTEROL SULFATE, ALBUTEROL) [Concomitant]
  15. INSULIN PUMP (INSULIN) [Concomitant]
  16. REMINYL [Concomitant]
  17. VASOTEC [Concomitant]
  18. ZOLOFT [Concomitant]
  19. RAMIPRIL [Concomitant]
  20. DOXYCYCLINE [Concomitant]
  21. TESSALON PERLES (BENZONATATE) [Concomitant]

REACTIONS (18)
  - ABDOMINAL PAIN [None]
  - BLOOD MAGNESIUM INCREASED [None]
  - CHOLELITHIASIS [None]
  - CONFUSIONAL STATE [None]
  - CONVULSION [None]
  - COUGH [None]
  - DIZZINESS [None]
  - DYSPNOEA [None]
  - HAEMATOCRIT DECREASED [None]
  - HEADACHE [None]
  - HEART RATE DECREASED [None]
  - HEART RATE INCREASED [None]
  - HYPOTENSION [None]
  - LOSS OF CONSCIOUSNESS [None]
  - NAUSEA [None]
  - SYNCOPE VASOVAGAL [None]
  - VOMITING [None]
  - WHITE BLOOD CELL COUNT INCREASED [None]
